FAERS Safety Report 19454943 (Version 1)
Quarter: 2021Q2

REPORT INFORMATION
  Report Type: Report from Study
  Country: PK (occurrence: PK)
  Receive Date: 20210623
  Receipt Date: 20210623
  Transmission Date: 20210717
  Serious: Yes (Death, Hospitalization)
  Sender: FDA-Public Use
  Company Number: NVSC2021PK141167

PATIENT
  Age: 37 Year
  Sex: Male
  Weight: 75 kg

DRUGS (1)
  1. AFINITOR [Suspect]
     Active Substance: EVEROLIMUS
     Indication: RENAL CELL CARCINOMA
     Dosage: 10 MG, QD
     Route: 048
     Dates: start: 20180919, end: 20210219

REACTIONS (1)
  - Death [Fatal]

NARRATIVE: CASE EVENT DATE: 20210321
